FAERS Safety Report 9745768 (Version 1)
Quarter: 2013Q4

REPORT INFORMATION
  Report Type: Spontaneous
  Country: CN (occurrence: None)
  Receive Date: 20131205
  Receipt Date: 20131205
  Transmission Date: 20140711
  Serious: Yes (Other)
  Sender: FDA-Public Use
  Company Number: CN-JNJFOC-20131118212

PATIENT
  Age: 67 Year
  Sex: Male

DRUGS (5)
  1. DECITABINE (DECITABINE) LYOPHILIZED POWDER [Suspect]
     Indication: ACUTE MYELOID LEUKAEMIA
     Dosage: 15 MG/M2,  1 IN 1 DAY, INTRAVENOUS
     Route: 042
  2. ACLACINOMYCIN (ACLARUBICIN) UNSPECIFIED [Suspect]
     Indication: ACUTE MYELOID LEUKAEMIA
     Dosage: 10 MG, 1 IN 1 DAY, INTRAVENOUS
     Route: 042
  3. CYTARABINE (CYTARABINE) INJECTION [Suspect]
     Indication: ACUTE MYELOID LEUKAEMIA
     Dosage: 10 MG/M2,  1 IN 12 HOUR, UNKNOWN
  4. GRANULOCYTE COLONY STIMULATING FACTOR (GRANULOCYTE COLONY STIMULATING FACTOR) INJECTION [Suspect]
     Indication: MYELOID LEUKAEMIA
  5. GRANULOCYTE COLONY STIMULATING FACTOR (GRANULOCYTE COLONY STIMULATING FACTOR) INJECTION [Suspect]
     Indication: ACUTE MYELOID LEUKAEMIA

REACTIONS (2)
  - Haematotoxicity [None]
  - No therapeutic response [None]
